FAERS Safety Report 15540205 (Version 2)
Quarter: 2018Q4

REPORT INFORMATION
  Report Type: Spontaneous
  Country: CA (occurrence: CA)
  Receive Date: 20181023
  Receipt Date: 20181029
  Transmission Date: 20190205
  Serious: Yes (Other)
  Sender: FDA-Public Use
  Company Number: CA-BRISTOL-MYERS SQUIBB COMPANY-BMS-2018-098895

PATIENT
  Sex: Male

DRUGS (2)
  1. ELIQUIS [Suspect]
     Active Substance: APIXABAN
     Indication: CEREBROVASCULAR ACCIDENT PROPHYLAXIS
     Dosage: UNK
     Route: 065
     Dates: start: 201802, end: 20181013
  2. FRAGMIN [Suspect]
     Active Substance: DALTEPARIN SODIUM
     Indication: PRODUCT USED FOR UNKNOWN INDICATION
     Dosage: 0.6 ML, UNK
     Route: 065
     Dates: start: 20181015

REACTIONS (7)
  - Balance disorder [Unknown]
  - Drug interaction [Unknown]
  - Headache [Recovering/Resolving]
  - Hernia [Unknown]
  - Vision blurred [Unknown]
  - Gait disturbance [Recovering/Resolving]
  - Dysarthria [Unknown]
